FAERS Safety Report 8370582-6 (Version None)
Quarter: 2012Q2

REPORT INFORMATION
  Report Type: 
  Country: None (occurrence: None)
  Receive Date: 20120518
  Receipt Date: 20120507
  Transmission Date: 20120825
  Serious: Yes (Hospitalization)
  Sender: FDA-Public Use
  Company Number: CA-JNJFOC-20120507674

PATIENT
  Sex: Female
  Weight: 73.6 kg

DRUGS (2)
  1. REMICADE [Suspect]
     Indication: CROHN'S DISEASE
     Dosage: HAS HAD 4 INFUSIONS
     Route: 042
     Dates: start: 20120223
  2. IMURAN [Concomitant]
     Route: 048

REACTIONS (1)
  - RECTAL FISTULA REPAIR [None]
